FAERS Safety Report 10498236 (Version 1)
Quarter: 2014Q4

REPORT INFORMATION
  Report Type: Spontaneous
  Country: GB (occurrence: GB)
  Receive Date: 20141006
  Receipt Date: 20141006
  Transmission Date: 20150528
  Serious: Yes (Hospitalization)
  Sender: FDA-Public Use
  Company Number: GB-TEVA-512329ISR

PATIENT
  Age: 69 Year
  Sex: Female

DRUGS (2)
  1. CIPROFLOXACIN. [Suspect]
     Active Substance: CIPROFLOXACIN
     Indication: SEPSIS
     Dosage: 1000 MILLIGRAM DAILY;
     Route: 048
  2. CO-AMOXICLAV [Suspect]
     Active Substance: AMOXICILLIN\CLAVULANIC ACID
     Indication: SEPSIS
     Dosage: 1875 MILLIGRAM DAILY; 500MG AMOXICILLIN/125MG CLAVULANIC ACID TABLETS
     Route: 048

REACTIONS (2)
  - Rash maculo-papular [Recovered/Resolved]
  - Cutaneous lupus erythematosus [Unknown]

NARRATIVE: CASE EVENT DATE: 20140906
